FAERS Safety Report 11455075 (Version 1)
Quarter: 2015Q3

REPORT INFORMATION
  Report Type: Spontaneous
  Country: JP (occurrence: JP)
  Receive Date: 20150903
  Receipt Date: 20150903
  Transmission Date: 20151125
  Serious: Yes (Other)
  Sender: FDA-Public Use
  Company Number: JP-GSKJP-JP2015JPN124294AA

PATIENT
  Age: 73 Year
  Sex: Female

DRUGS (6)
  1. REQUIP [Suspect]
     Active Substance: ROPINIROLE HYDROCHLORIDE
     Dosage: 6 MG, QD
     Route: 048
     Dates: start: 20150331, end: 20150402
  2. REQUIP [Suspect]
     Active Substance: ROPINIROLE HYDROCHLORIDE
     Indication: PARKINSON^S DISEASE
     Dosage: 2 MG, QD
     Route: 048
     Dates: start: 20150317, end: 20150323
  3. CABASER [Suspect]
     Active Substance: CABERGOLINE
     Indication: PARKINSON^S DISEASE
     Dosage: 3 MG, QD
     Route: 048
     Dates: start: 20120712, end: 20150316
  4. CABASER [Suspect]
     Active Substance: CABERGOLINE
     Dosage: 2 MG, QD
     Route: 048
     Dates: start: 20150317, end: 20150323
  5. REQUIP [Suspect]
     Active Substance: ROPINIROLE HYDROCHLORIDE
     Dosage: 4 MG, QD
     Route: 048
     Dates: start: 20150324, end: 20150330
  6. CABASER [Suspect]
     Active Substance: CABERGOLINE
     Dosage: 1 MG, QD
     Route: 048
     Dates: start: 20150324, end: 20150330

REACTIONS (2)
  - Parkinson^s disease [Recovering/Resolving]
  - Disease progression [Recovering/Resolving]

NARRATIVE: CASE EVENT DATE: 20150401
